FAERS Safety Report 5281206-9 (Version None)
Quarter: 2007Q1

REPORT INFORMATION
  Report Type: 
  Country: None (occurrence: None)
  Receive Date: 20070329
  Receipt Date: 20070320
  Transmission Date: 20070707
  Serious: Yes (Other)
  Sender: FDA-Public Use
  Company Number: JP-ABBOTT-07P-087-0361086-00

PATIENT
  Age: 77 Year
  Sex: Male

DRUGS (5)
  1. SEVOFLURANE [Suspect]
     Indication: GENERAL ANAESTHESIA
     Route: 055
  2. THIOPENTAL SODIUM [Concomitant]
     Indication: INDUCTION OF ANAESTHESIA
     Route: 042
  3. FENTANYL [Concomitant]
     Indication: GENERAL ANAESTHESIA
     Route: 042
  4. VECURONIUM BROMIDE [Concomitant]
     Indication: INDUCTION OF ANAESTHESIA
     Route: 042
  5. NITROUS OXIDE W/ OXYGEN [Concomitant]
     Indication: ANAESTHESIA
     Dosage: NOT REPORTED
     Route: 065

REACTIONS (8)
  - BRADYCARDIA [None]
  - CIRCULATORY COLLAPSE [None]
  - HEPATIC CYST [None]
  - IATROGENIC INJURY [None]
  - LIVER INJURY [None]
  - PROCEDURAL COMPLICATION [None]
  - SPLENIC INJURY [None]
  - VENTRICULAR FIBRILLATION [None]
